FAERS Safety Report 25605143 (Version 4)
Quarter: 2025Q4

REPORT INFORMATION
  Report Type: Spontaneous
  Country: JP (occurrence: JP)
  Receive Date: 20250725
  Receipt Date: 20251217
  Transmission Date: 20260118
  Serious: Yes (Hospitalization, Other)
  Sender: CATALYST PHARMA
  Company Number: JP-CATALYSTPHARMACEUTICALPARTNERS-JP-CATA-25-01064

PATIENT

DRUGS (2)
  1. FYCOMPA [Suspect]
     Active Substance: PERAMPANEL
     Indication: Product used for unknown indication
     Dosage: 2.0 MILLIGRAM(S) (2 MILLIGRAM(S), 1 IN 1 DAY)
     Route: 048
     Dates: start: 20250620, end: 20250623
  2. LEVETIRACETAM [Suspect]
     Active Substance: LEVETIRACETAM
     Indication: Product used for unknown indication
     Dosage: 500 MG X2
     Route: 065
     Dates: start: 20250620

REACTIONS (4)
  - Blood creatinine increased [Recovered/Resolved]
  - Rhabdomyolysis [Recovered/Resolved]
  - Renal disorder [Unknown]
  - Drug interaction [Recovered/Resolved]

NARRATIVE: CASE EVENT DATE: 20250601
